FAERS Safety Report 13157159 (Version 2)
Quarter: 2017Q1

REPORT INFORMATION
  Report Type: Spontaneous
  Country: US (occurrence: US)
  Receive Date: 20170127
  Receipt Date: 20170309
  Transmission Date: 20170428
  Serious: Yes (Disabling)
  Sender: FDA-Public Use
  Company Number: US-ASTRAZENECA-2017SE07959

PATIENT
  Sex: Female

DRUGS (2)
  1. SYMBICORT [Suspect]
     Active Substance: BUDESONIDE\FORMOTEROL FUMARATE DIHYDRATE
     Dosage: 160/4.5MCG INHALER, 2 PUFFS TWICE DAILY
     Route: 055
     Dates: start: 20170102
  2. SYMBICORT [Suspect]
     Active Substance: BUDESONIDE\FORMOTEROL FUMARATE DIHYDRATE
     Dosage: 160/4.5MCG INHALER, 2 PUFFS TWICE DAILY
     Route: 055

REACTIONS (2)
  - Blindness [Unknown]
  - Device malfunction [Unknown]

NARRATIVE: CASE EVENT DATE: 20170115
